FAERS Safety Report 19488105 (Version 1)
Quarter: 2021Q3

REPORT INFORMATION
  Report Type: Spontaneous
  Country: GR (occurrence: GR)
  Receive Date: 20210702
  Receipt Date: 20210702
  Transmission Date: 20211014
  Serious: Yes (Other)
  Sender: FDA-Public Use
  Company Number: GR-AMGEN-GRCSP2021099483

PATIENT

DRUGS (2)
  1. ADALIMUMAB [Suspect]
     Active Substance: ADALIMUMAB
     Indication: INFLAMMATORY BOWEL DISEASE
     Dosage: UNK
     Route: 065
  2. ADALIMUMAB [Suspect]
     Active Substance: ADALIMUMAB
     Indication: CROHN^S DISEASE

REACTIONS (11)
  - Colitis ulcerative [Unknown]
  - Adverse event [Unknown]
  - Nervous system disorder [Unknown]
  - Thrombosis [Unknown]
  - Local reaction [Unknown]
  - Mood altered [Unknown]
  - Rash [Unknown]
  - Infection [Unknown]
  - Hypersensitivity [Unknown]
  - Arthralgia [Unknown]
  - Muscle disorder [Unknown]
